FAERS Safety Report 5844753-4 (Version None)
Quarter: 2008Q3

REPORT INFORMATION
  Report Type: 
  Country: None (occurrence: None)
  Receive Date: 20080812
  Receipt Date: 20080730
  Transmission Date: 20090109
  Serious: Yes (Death, Hospitalization)
  Sender: FDA-Public Use
  Company Number: 2008001811

PATIENT
  Sex: Male

DRUGS (11)
  1. ERLOTINIB [Suspect]
     Indication: LUNG NEOPLASM MALIGNANT
     Dosage: 150 MG QD ORAL
     Route: 048
     Dates: start: 20070315, end: 20070801
  2. NOVALGIN (METAMIZOLE SODIUM) [Concomitant]
  3. CONCOR (BISOPROLOL FUMARATE) [Concomitant]
  4. ASPIRIN [Concomitant]
  5. ZOCOR [Concomitant]
  6. MOVICOL (NULYTELY) [Concomitant]
  7. RAMIPRIL [Concomitant]
  8. PANTOPRAZOLE SODIUM [Concomitant]
  9. MORPHINE [Concomitant]
  10. DURAGESIC-100 [Concomitant]
  11. IMBUM (IBUPROFEN LYSINATE) [Concomitant]

REACTIONS (1)
  - PLEURAL EFFUSION [None]
